FAERS Safety Report 20695015 (Version 6)
Quarter: 2022Q3

REPORT INFORMATION
  Report Type: Spontaneous
  Country: US (occurrence: US)
  Receive Date: 20220411
  Receipt Date: 20220712
  Transmission Date: 20221027
  Serious: Yes (Other)
  Sender: FDA-Public Use
  Company Number: US-SANOFI-01050165

PATIENT
  Age: 51 Year
  Sex: Male

DRUGS (5)
  1. LANTUS [Suspect]
     Active Substance: INSULIN GLARGINE
     Indication: Type 1 diabetes mellitus
     Dosage: UNK, QD
  2. LANTUS [Suspect]
     Active Substance: INSULIN GLARGINE
     Dosage: 10 AM TOOK LANTUS 32 UNITS AND 2 PM TOOK 12 UNITS
     Dates: start: 20220403
  3. TOUJEO [Suspect]
     Active Substance: INSULIN GLARGINE
     Indication: Type 1 diabetes mellitus
     Dosage: 29 U
  4. TOUJEO [Suspect]
     Active Substance: INSULIN GLARGINE
     Dosage: 32 IU EACH MORNING
  5. INSULIN LISPRO [Suspect]
     Active Substance: INSULIN LISPRO
     Indication: Blood glucose abnormal
     Dosage: 20-30 UNITS,25 UNITS

REACTIONS (11)
  - Diabetes mellitus inadequate control [Unknown]
  - Sleep disorder [Unknown]
  - Pollakiuria [Unknown]
  - Dehydration [Unknown]
  - Visual impairment [Unknown]
  - Blood glucose increased [Unknown]
  - Blood glucose decreased [Unknown]
  - Blood glucose fluctuation [Unknown]
  - Inappropriate schedule of product administration [Unknown]
  - Extra dose administered [Unknown]
  - Therapeutic response decreased [Unknown]

NARRATIVE: CASE EVENT DATE: 20220403
